FAERS Safety Report 9075875 (Version 1)
Quarter: 2013Q1

REPORT INFORMATION
  Report Type: Spontaneous
  Country: CA (occurrence: CA)
  Receive Date: 20130130
  Receipt Date: 20130130
  Transmission Date: 20140127
  Serious: Yes (Death, Other)
  Sender: FDA-Public Use
  Company Number: CA-AMGEN-CANSP2013005396

PATIENT
  Age: 74 Year
  Sex: Female
  Weight: 56.82 kg

DRUGS (1)
  1. PROLIA [Suspect]
     Indication: OSTEOPOROSIS
     Dosage: UNK
     Dates: start: 20120821

REACTIONS (4)
  - Death [Fatal]
  - Kidney infection [Unknown]
  - Lung infection [Unknown]
  - Cystitis [Unknown]
